FAERS Safety Report 21006050 (Version 2)
Quarter: 2022Q3

REPORT INFORMATION
  Report Type: Report from Study
  Country: US (occurrence: US)
  Receive Date: 20220624
  Receipt Date: 20220830
  Transmission Date: 20221027
  Serious: Yes (Other)
  Sender: FDA-Public Use
  Company Number: US-TAKEDA-2022TUS042331

PATIENT
  Age: 72 Year
  Sex: Female
  Weight: 100.23 kg

DRUGS (2)
  1. VORTIOXETINE [Suspect]
     Active Substance: VORTIOXETINE
     Indication: Affective disorder
     Dosage: 20 MILLIGRAM, QD
     Route: 048
     Dates: start: 20220601
  2. VORTIOXETINE [Suspect]
     Active Substance: VORTIOXETINE
     Dosage: 10 MILLIGRAM, QD
     Route: 048
     Dates: start: 20220617

REACTIONS (4)
  - Feeling abnormal [Recovering/Resolving]
  - Psychomotor hyperactivity [Recovering/Resolving]
  - Mania [Recovered/Resolved]
  - Product use in unapproved indication [Unknown]

NARRATIVE: CASE EVENT DATE: 20220612
